FAERS Safety Report 8239406-1 (Version None)
Quarter: 2012Q1

REPORT INFORMATION
  Report Type: 
  Country: None (occurrence: None)
  Receive Date: 20120326
  Receipt Date: 20120313
  Transmission Date: 20120608
  Serious: Yes (Hospitalization, Other)
  Sender: FDA-Public Use
  Company Number: ES-DEXPHARM-20120086

PATIENT
  Age: 37 Year
  Sex: Female

DRUGS (3)
  1. PROPAMIDINE ISETHIONATE [Suspect]
     Indication: KERATITIS
     Dosage: SEP. DOSAGES / INTERVAL: INTRAOCULAR
     Route: 031
  2. CHLORHEXIDINE (0.02% DROPS) ACTIVE SUBSTANCES: CHLORHEXIDINE [Suspect]
     Indication: KERATITIS
     Dosage: SEP. DOSAGES / INTERVAL: 3 IN 1 DAY INTRAOCULAR
     Route: 031
  3. FLUOROMETHOLONE [Suspect]
     Indication: KERATITIS
     Dosage: SEP. DOSAGES / INTERVAL: INTRAOCULAR
     Route: 031
     Dates: start: 20041001

REACTIONS (4)
  - CORNEAL ABSCESS [None]
  - CATARACT [None]
  - IRIS ATROPHY [None]
  - CONJUNCTIVAL HYPERAEMIA [None]
